FAERS Safety Report 10916599 (Version 2)
Quarter: 2015Q2

REPORT INFORMATION
  Report Type: Spontaneous
  Country: US (occurrence: US)
  Receive Date: 20150316
  Receipt Date: 20150524
  Transmission Date: 20150821
  Serious: No
  Sender: FDA-Public Use
  Company Number: US-JNJFOC-20140103911

PATIENT
  Sex: Male

DRUGS (6)
  1. PREDNISONE. [Concomitant]
     Active Substance: PREDNISONE
     Route: 065
  2. CALCIUM [Concomitant]
     Active Substance: CALCIUM
     Route: 065
  3. LUPRON [Concomitant]
     Active Substance: LEUPROLIDE ACETATE
     Route: 065
  4. ZYTIGA [Suspect]
     Active Substance: ABIRATERONE ACETATE
     Indication: PRODUCT USED FOR UNKNOWN INDICATION
     Route: 048
  5. CALCIUM AND VIT D [Concomitant]
     Route: 065
  6. POLYCITRA [Concomitant]
     Indication: NEPHROLITHIASIS
     Dosage: 3 TABLESPOONS A DAY (2 TABLESPOONS IN THE??MORNING AND 1 TABLESPOON WITH DINNER)
     Route: 065

REACTIONS (2)
  - Prostatic specific antigen abnormal [Unknown]
  - Bone disorder [Unknown]
